FAERS Safety Report 9599353 (Version 1)
Quarter: 2013Q4

REPORT INFORMATION
  Report Type: Spontaneous
  Country: US (occurrence: US)
  Receive Date: 20131004
  Receipt Date: 20131004
  Transmission Date: 20140711
  Serious: No
  Sender: FDA-Public Use
  Company Number: US-AMGEN-USASP2013029154

PATIENT
  Age: 66 Year
  Sex: Female
  Weight: 54.42 kg

DRUGS (7)
  1. ENBREL [Suspect]
     Indication: PRODUCT USED FOR UNKNOWN INDICATION
     Dosage: 50 MG, QWK
     Route: 058
  2. VITAMIN D                          /00107901/ [Concomitant]
     Dosage: 400 UNIT, UNK
  3. FOLIC ACID [Concomitant]
     Dosage: UNK
  4. METHOTREXATE [Concomitant]
     Dosage: 2.5 MG, UNK
  5. IBUPROFEN [Concomitant]
     Dosage: 200 MG, UNK
  6. CELEBREX [Concomitant]
     Dosage: 200 MG, UNK
  7. TYLENOL ARTHRITIS [Concomitant]
     Dosage: 650 MG, UNK

REACTIONS (1)
  - Sinusitis [Recovered/Resolved]
